FAERS Safety Report 17420992 (Version 1)
Quarter: 2020Q1

REPORT INFORMATION
  Report Type: Spontaneous
  Country: US (occurrence: US)
  Receive Date: 20200214
  Receipt Date: 20200214
  Transmission Date: 20200409
  Serious: No
  Sender: FDA-Public Use
  Company Number: US-THERAPEUTICSMD-2019TMD04916

PATIENT
  Age: 61 Year
  Sex: Female

DRUGS (7)
  1. VITAMIN B12 [Concomitant]
     Active Substance: CYANOCOBALAMIN
  2. BIJUVA [Suspect]
     Active Substance: ESTRADIOL\PROGESTERONE
     Indication: HOT FLUSH
     Dosage: 1 CAPSULES, 1X/DAY
     Route: 048
     Dates: start: 201911
  3. VITAMIN D [Concomitant]
     Active Substance: VITAMIN D NOS
  4. FOLIC ACID. [Concomitant]
     Active Substance: FOLIC ACID
  5. BIJUVA [Suspect]
     Active Substance: ESTRADIOL\PROGESTERONE
     Indication: NIGHT SWEATS
  6. XELJANZ [Concomitant]
     Active Substance: TOFACITINIB CITRATE
  7. METHOTREXATE. [Concomitant]
     Active Substance: METHOTREXATE

REACTIONS (1)
  - Therapeutic product effect incomplete [Not Recovered/Not Resolved]

NARRATIVE: CASE EVENT DATE: 201911
